FAERS Safety Report 13518410 (Version 1)
Quarter: 2017Q2

REPORT INFORMATION
  Report Type: Spontaneous
  Country: BR (occurrence: BR)
  Receive Date: 20170505
  Receipt Date: 20170505
  Transmission Date: 20170830
  Serious: Yes (Other)
  Sender: FDA-Public Use
  Company Number: BR-AVADEL PHARMACEUTICALS (USA), INC.-2017AVA00044

PATIENT
  Sex: Female

DRUGS (3)
  1. RABEPRAZOLE SODIUM. [Suspect]
     Active Substance: RABEPRAZOLE SODIUM
     Dosage: UNK
     Route: 048
     Dates: start: 2014, end: 2017
  2. PARIET [Suspect]
     Active Substance: RABEPRAZOLE SODIUM
     Dosage: 20 MG, 1X/DAY
     Dates: start: 2017
  3. PARIET [Suspect]
     Active Substance: RABEPRAZOLE SODIUM
     Dosage: UNK UNK
     Route: 048
     Dates: start: 2007, end: 2014

REACTIONS (3)
  - Dyspepsia [Unknown]
  - Gastric cancer [Unknown]
  - Weight decreased [Unknown]

NARRATIVE: CASE EVENT DATE: 2017
